FAERS Safety Report 16466125 (Version 3)
Quarter: 2019Q4

REPORT INFORMATION
  Report Type: Spontaneous
  Country: US (occurrence: US)
  Receive Date: 20190621
  Receipt Date: 20191222
  Transmission Date: 20200122
  Serious: No
  Sender: FDA-Public Use
  Company Number: US-ACORDA-ACO_159213_2019

PATIENT
  Sex: Male
  Weight: 86.17 kg

DRUGS (8)
  1. INBRIJA [Suspect]
     Active Substance: LEVODOPA
     Indication: PARKINSON^S DISEASE
     Dosage: 2 DOSAGE FORM
     Dates: start: 201811
  2. INBRIJA [Suspect]
     Active Substance: LEVODOPA
     Dosage: INHALE CONTENTS OF 3 CAPSULES (126 MILLIGRAM TOTAL) BID
     Dates: start: 201907
  3. ATORVASTATIN [Concomitant]
     Active Substance: ATORVASTATIN
     Indication: PRODUCT USED FOR UNKNOWN INDICATION
     Dosage: 1 TABLET QD
     Route: 048
  4. OTHER THERAPEUTIC PRODUCTS [Concomitant]
     Active Substance: UNSPECIFIED INGREDIENT
     Indication: PROSTATIC DISORDER
     Dosage: AS DIRECTED
     Route: 048
  5. INBRIJA [Suspect]
     Active Substance: LEVODOPA
     Indication: ON AND OFF PHENOMENON
     Dosage: 42 MILLIGRAM, INHALE CONTENTS OF 2 CAPSULES (84 MILLIGRAM TOTAL) UP TO FIVE TIMES PER DAY AS NEEDED
     Dates: start: 20190604, end: 20190606
  6. ASPIRIN. [Concomitant]
     Active Substance: ASPIRIN
     Indication: PRODUCT USED FOR UNKNOWN INDICATION
     Dosage: 81 MILLIGRAM, QD
     Route: 048
  7. SELEGILINE [Concomitant]
     Active Substance: SELEGILINE
     Indication: PRODUCT USED FOR UNKNOWN INDICATION
     Dosage: 2 TABLET QD
     Route: 048
  8. CARBIDOPA/LEVODOPA [Concomitant]
     Active Substance: CARBIDOPA\LEVODOPA
     Indication: PRODUCT USED FOR UNKNOWN INDICATION
     Dosage: UNK, AS DIRECTED
     Route: 048

REACTIONS (6)
  - Therapeutic product effect decreased [Unknown]
  - Product prescribing error [Unknown]
  - Gait disturbance [Unknown]
  - Cough [Unknown]
  - Device issue [Unknown]
  - Drug ineffective [Unknown]
